FAERS Safety Report 10768373 (Version 1)
Quarter: 2015Q1

REPORT INFORMATION
  Report Type: Spontaneous
  Country: US (occurrence: US)
  Receive Date: 20150206
  Receipt Date: 20150206
  Transmission Date: 20150721
  Serious: Yes (Other)
  Sender: FDA-Public Use
  Company Number: US-ROCHE-1533027

PATIENT
  Age: 6 Year
  Sex: Male

DRUGS (1)
  1. TAMIFLU [Suspect]
     Active Substance: OSELTAMIVIR PHOSPHATE
     Indication: INFLUENZA
     Dosage: SUSPENSION
     Route: 048

REACTIONS (7)
  - Middle insomnia [Unknown]
  - Emotional disorder [Unknown]
  - Self-injurious ideation [Unknown]
  - Sleep disorder [Unknown]
  - Nightmare [Unknown]
  - Abnormal behaviour [Unknown]
  - Memory impairment [Unknown]
